FAERS Safety Report 5136375-8 (Version None)
Quarter: 2006Q4

REPORT INFORMATION
  Report Type: 
  Country: None (occurrence: None)
  Receive Date: 20061027
  Receipt Date: 20061017
  Transmission Date: 20070319
  Serious: Yes (Other)
  Sender: FDA-Public Use
  Company Number: US-SANOFI-SYNTHELABO-A03200606318

PATIENT
  Age: 73 Year
  Sex: Male

DRUGS (9)
  1. ZETIA [Concomitant]
     Dosage: UNK
     Route: 048
  2. ZOCOR [Concomitant]
     Dosage: UNK
     Route: 048
  3. VYTORIN [Concomitant]
     Dosage: UNK
     Route: 048
  4. PLAVIX [Concomitant]
     Route: 048
     Dates: start: 20040101
  5. CYMBALTA [Concomitant]
     Dosage: UNK
     Route: 048
  6. CLONAZEPAM [Concomitant]
     Dosage: UNK
     Route: 048
  7. ASPIRIN [Concomitant]
     Route: 048
     Dates: end: 20050101
  8. AMBIEN [Suspect]
     Indication: SLEEP DISORDER
     Dosage: 10 MG HS, INCREASED TO 20 MG HS
     Route: 048
  9. SEROQUEL [Concomitant]
     Route: 048

REACTIONS (5)
  - ASTHENIA [None]
  - DRUG INEFFECTIVE [None]
  - FATIGUE [None]
  - TRANSIENT ISCHAEMIC ATTACK [None]
  - VISION BLURRED [None]
